FAERS Safety Report 6673191-X (Version None)
Quarter: 2010Q2

REPORT INFORMATION
  Report Type: 
  Country: None (occurrence: None)
  Receive Date: 20100408
  Receipt Date: 20100330
  Transmission Date: 20101027
  Serious: Yes (Hospitalization, Disabling)
  Sender: FDA-Public Use
  Company Number: JP-BRISTOL-MYERS SQUIBB COMPANY-14602916

PATIENT
  Age: 58 Year
  Sex: Male
  Weight: 54 kg

DRUGS (5)
  1. ERBITUX [Suspect]
     Indication: RECTAL CANCER
     Dosage: IV INFUSION
     Route: 042
     Dates: start: 20090129, end: 20090129
  2. IRINOTECAN HCL [Suspect]
     Indication: RECTAL CANCER
     Dosage: IV INFUSION
     Route: 042
     Dates: start: 20090129, end: 20090129
  3. VENA [Concomitant]
     Indication: PREMEDICATION
     Dosage: FORM :TABLET
     Route: 048
     Dates: start: 20090129, end: 20090129
  4. DECADRON [Concomitant]
     Indication: PREMEDICATION
     Dosage: IV INFUSION.
     Route: 042
     Dates: start: 20090129, end: 20090129
  5. NEUTROGIN [Concomitant]
     Route: 058
     Dates: start: 20090206, end: 20090210

REACTIONS (3)
  - DECREASED APPETITE [None]
  - MALAISE [None]
  - WHITE BLOOD CELL COUNT DECREASED [None]
